FAERS Safety Report 7938466-2 (Version None)
Quarter: 2011Q4

REPORT INFORMATION
  Report Type: 
  Country: None (occurrence: None)
  Receive Date: 20111123
  Receipt Date: 20111114
  Transmission Date: 20120403
  Serious: Yes (Hospitalization)
  Sender: FDA-Public Use
  Company Number: US-ASTRAZENECA-2011SE50564

PATIENT
  Age: 51 Year
  Sex: Male

DRUGS (1)
  1. NEXIUM [Suspect]
     Route: 048

REACTIONS (5)
  - SLEEP DISORDER DUE TO A GENERAL MEDICAL CONDITION [None]
  - DRUG DOSE OMISSION [None]
  - GASTROINTESTINAL INJURY [None]
  - ROAD TRAFFIC ACCIDENT [None]
  - ILL-DEFINED DISORDER [None]
